FAERS Safety Report 21968026 (Version 2)
Quarter: 2023Q1

REPORT INFORMATION
  Report Type: Other
  Country: ES (occurrence: ES)
  Receive Date: 20230208
  Receipt Date: 20230313
  Transmission Date: 20230418
  Serious: Yes (Hospitalization, Other)
  Sender: FDA-Public Use
  Company Number: ES-EMA-DD-20220627-7182781-082458

PATIENT
  Age: 75 Year
  Sex: Male

DRUGS (13)
  1. METFORMIN [Interacting]
     Active Substance: METFORMIN HYDROCHLORIDE
     Indication: Diabetes mellitus
     Dosage: 850 MILLIGRAM, BID (1/0/1)
     Dates: start: 2018
  2. CLOPIDOGREL [Interacting]
     Active Substance: CLOPIDOGREL BISULFATE
     Indication: Cardiovascular disorder
     Dosage: 0/1/0, 2 YEARS AGO
     Route: 048
  3. VILDAGLIPTIN [Interacting]
     Active Substance: VILDAGLIPTIN
     Indication: Diabetes mellitus
     Dosage: 0/1/1
     Route: 048
  4. DONEPEZIL [Suspect]
     Active Substance: DONEPEZIL
     Indication: Dementia
     Dosage: 1/0/0, ONE YEAR AGO
     Route: 048
  5. PREDNISONE [Interacting]
     Active Substance: PREDNISONE
     Indication: Gastrointestinal inflammation
     Dosage: FREQUENCY OF ADMINISTRATION 0.5/0.5, FOR 3 MONTHS
     Dates: start: 202005
  6. PREDNISONE [Interacting]
     Active Substance: PREDNISONE
     Indication: Inflammatory bowel disease
     Dosage: FREQUENCY OF ADMINISTRATION 0.5/0.5, FOR 3 MONTHS
     Route: 048
  7. REPAGLINIDE [Interacting]
     Active Substance: REPAGLINIDE
     Indication: Diabetes mellitus
     Dosage: 1/1/1; FREQUENCY OF ADMINISTRATION 2/2/1
     Route: 048
  8. PANTOPRAZOLE [Interacting]
     Active Substance: PANTOPRAZOLE
     Indication: Gastrointestinal disorder prophylaxis
     Dosage: 1/0/0, UNK
     Route: 048
     Dates: start: 202005
  9. ACETAMINOPHEN [Suspect]
     Active Substance: ACETAMINOPHEN
     Indication: Pain
     Dosage: AS NEEDED
     Route: 048
  10. FOLIC ACID [Concomitant]
     Active Substance: FOLIC ACID
     Indication: Folate deficiency
     Dosage: 0/1/0
     Route: 048
  11. CALCIUM\CHOLECALCIFEROL [Concomitant]
     Active Substance: CALCIUM\CHOLECALCIFEROL
     Indication: Osteoporosis prophylaxis
     Dosage: 1000 MG/800 UI, FREQUENCY OF ADMINISTRATION 1/0/0, FOR 3  MONTHS
     Route: 048
  12. VIDARABINE [Concomitant]
     Active Substance: VIDARABINE
     Indication: Diabetes mellitus
     Dosage: 50 MILLIGRAM, BID (0/1/1)
  13. CALCIO + VIT D3 [Concomitant]
     Indication: Steroid therapy
     Dosage: 1/0/0, THREE MONTHS AGO, 1000/800 MG/UI,
     Route: 048

REACTIONS (11)
  - Anal incontinence [Recovering/Resolving]
  - Crohn^s disease [Unknown]
  - Abdominal pain [Recovering/Resolving]
  - Diarrhoea [Recovering/Resolving]
  - Blood triglycerides increased [Recovering/Resolving]
  - Blood glucose increased [Recovering/Resolving]
  - Glycosylated haemoglobin increased [Recovering/Resolving]
  - Hyperglycaemia [Recovering/Resolving]
  - Flatulence [Recovering/Resolving]
  - Contraindication to medical treatment [Recovering/Resolving]
  - Product prescribing issue [Recovering/Resolving]
